FAERS Safety Report 23922930 (Version 1)
Quarter: 2024Q2

REPORT INFORMATION
  Report Type: Report from Study
  Country: CA (occurrence: CA)
  Receive Date: 20240531
  Receipt Date: 20240531
  Transmission Date: 20240716
  Serious: Yes (Other)
  Sender: FDA-Public Use
  Company Number: CA-002147023-NVSC2024CA112769

PATIENT
  Age: 49 Year
  Sex: Male

DRUGS (1)
  1. COSENTYX [Suspect]
     Active Substance: SECUKINUMAB
     Indication: Hidradenitis
     Dosage: 300 MG, QMO
     Route: 058
     Dates: start: 20240401

REACTIONS (6)
  - Anal abscess [Unknown]
  - Groin abscess [Unknown]
  - Subcutaneous abscess [Unknown]
  - Hidradenitis [Unknown]
  - Nodule [Unknown]
  - Fistula [Unknown]

NARRATIVE: CASE EVENT DATE: 20240527
